FAERS Safety Report 20924993 (Version 1)
Quarter: 2022Q2

REPORT INFORMATION
  Report Type: Spontaneous
  Country: CA (occurrence: CA)
  Receive Date: 20220607
  Receipt Date: 20220607
  Transmission Date: 20220721
  Serious: Yes (Other)
  Sender: FDA-Public Use
  Company Number: CA-TEVA-2022-CA-2042680

PATIENT
  Age: 61 Year
  Sex: Female

DRUGS (2)
  1. LETROZOLE [Interacting]
     Active Substance: LETROZOLE
     Indication: Breast cancer
     Route: 065
  2. PALBOCICLIB [Suspect]
     Active Substance: PALBOCICLIB
     Indication: Breast cancer
     Route: 065

REACTIONS (2)
  - Drug-induced liver injury [Recovered/Resolved]
  - Drug interaction [Recovered/Resolved]
